FAERS Safety Report 24550735 (Version 1)
Quarter: 2024Q4

REPORT INFORMATION
  Report Type: Spontaneous
  Country: US (occurrence: None)
  Receive Date: 20241025
  Receipt Date: 20241025
  Transmission Date: 20250114
  Serious: No
  Sender: Public
  Company Number: None

PATIENT
  Sex: Female

DRUGS (2)
  1. SKYRIZI [Suspect]
     Active Substance: RISANKIZUMAB-RZAA
     Indication: Psoriatic arthropathy
     Dosage: OTHER FREQUENCY : EVERY12WEEKS;?
     Route: 058
     Dates: start: 202409
  2. OTEZLA [Concomitant]

REACTIONS (3)
  - Psoriatic arthropathy [None]
  - Fatigue [None]
  - Arthralgia [None]
